FAERS Safety Report 6944732-X (Version None)
Quarter: 2010Q3

REPORT INFORMATION
  Report Type: 
  Country: None (occurrence: None)
  Receive Date: 20100827
  Receipt Date: 20100817
  Transmission Date: 20110219
  Serious: Yes (Other)
  Sender: FDA-Public Use
  Company Number: CA-PFIZER INC-2010103098

PATIENT
  Age: 65 Year
  Sex: Male

DRUGS (5)
  1. LYRICA [Suspect]
     Indication: PAIN
     Dosage: 150 MG, UNK
     Dates: start: 20100801
  2. CRESTOR [Concomitant]
     Dosage: UNK
  3. ACETYLSALICYLIC ACID [Concomitant]
     Dosage: UNK
  4. ELTROXIN [Concomitant]
     Indication: THYROID DISORDER
     Dosage: UNK
  5. PREVACID [Concomitant]
     Dosage: UNK

REACTIONS (1)
  - HAEMORRHAGE [None]
